FAERS Safety Report 16100022 (Version 1)
Quarter: 2019Q1

REPORT INFORMATION
  Report Type: Spontaneous
  Country: US (occurrence: US)
  Receive Date: 20190218
  Receipt Date: 20190218
  Transmission Date: 20190418
  Serious: Yes (Hospitalization)
  Sender: FDA-Public Use
  Company Number: None

PATIENT
  Age: 71 Year
  Sex: Female
  Weight: 76.2 kg

DRUGS (9)
  1. CISPLATIN. [Suspect]
     Active Substance: CISPLATIN
     Indication: SQUAMOUS CELL CARCINOMA OF LUNG
     Dosage: ?          OTHER DOSE:75MG/M2/DOSE;?
     Route: 042
     Dates: start: 20181023, end: 20181207
  2. VENTOLIN HFA 90MCGACTUATION INHALER [Concomitant]
  3. MUCINES, 1200MG BID [Concomitant]
  4. GENCITABINE [Concomitant]
     Active Substance: GEMCITABINE HYDROCHLORIDE
  5. NIVOLUMAB [Suspect]
     Active Substance: NIVOLUMAB
     Indication: SQUAMOUS CELL CARCINOMA OF LUNG
     Route: 042
     Dates: start: 20181023, end: 20181207
  6. TYLENOL EXTRA STRENGTH [Concomitant]
     Active Substance: ACETAMINOPHEN
  7. ANORA ELLIPTA, 62.5 - 25 MCG/ ACTUATION BLISTER WITH DEVICE [Concomitant]
  8. PAMELOR, 75MG NIGHTLY [Concomitant]
  9. ZOFRAN, 8MG, Q8HRS PRN [Concomitant]

REACTIONS (8)
  - Respiratory failure [None]
  - Hypoxia [None]
  - Bradycardia [None]
  - Arterial haemorrhage [None]
  - Cardiac arrest [None]
  - Procedural complication [None]
  - Acidosis [None]
  - Increased bronchial secretion [None]

NARRATIVE: CASE EVENT DATE: 20190118
